FAERS Safety Report 13755303 (Version 3)
Quarter: 2017Q3

REPORT INFORMATION
  Report Type: Spontaneous
  Country: US (occurrence: US)
  Receive Date: 20170714
  Receipt Date: 20170913
  Transmission Date: 20171127
  Serious: No
  Sender: FDA-Public Use
  Company Number: US-PFIZER INC-2017300713

PATIENT
  Age: 82 Year
  Sex: Female

DRUGS (1)
  1. HYDROCHLOROTHIAZIDE/SPIRONOLACTONE [Suspect]
     Active Substance: HYDROCHLOROTHIAZIDE\SPIRONOLACTONE
     Indication: BLOOD PRESSURE ABNORMAL
     Dosage: 1 DF, 1X/DAY (25/25 TAB 1 TABLET ONCE A DAY)

REACTIONS (7)
  - Back pain [Unknown]
  - Pruritus [Unknown]
  - Rash macular [Unknown]
  - Dyspepsia [Unknown]
  - Hypersensitivity [Unknown]
  - Urticaria [Unknown]
  - Documented hypersensitivity to administered product [None]
